FAERS Safety Report 15091442 (Version 1)
Quarter: 2018Q2

REPORT INFORMATION
  Report Type: Spontaneous
  Country: US (occurrence: US)
  Receive Date: 20180629
  Receipt Date: 20180629
  Transmission Date: 20180711
  Serious: No
  Sender: FDA-Public Use
  Company Number: US-AMGEN-USASP2016160313

PATIENT

DRUGS (1)
  1. PROLIA [Suspect]
     Active Substance: DENOSUMAB
     Indication: OSTEOPOROSIS
     Dosage: UNK
     Route: 065

REACTIONS (8)
  - Acne [Unknown]
  - Myalgia [Unknown]
  - Headache [Unknown]
  - Infection [Unknown]
  - Oral herpes [Unknown]
  - Gait disturbance [Unknown]
  - Arthralgia [Unknown]
  - Adverse drug reaction [Unknown]
